FAERS Safety Report 17064511 (Version 1)
Quarter: 2019Q4

REPORT INFORMATION
  Report Type: Spontaneous
  Country: US (occurrence: US)
  Receive Date: 20191024
  Receipt Date: 20191024
  Transmission Date: 20200122
  Serious: No
  Sender: FDA-Public Use
  Company Number: None

PATIENT
  Age: 58 Year
  Sex: Male

DRUGS (1)
  1. COSENTYX [Suspect]
     Active Substance: SECUKINUMAB
     Dosage: ?          OTHER DOSE:1 BOX OF 2 PENS;?
     Route: 058
     Dates: start: 201910

REACTIONS (2)
  - Wrong technique in device usage process [None]
  - Treatment noncompliance [None]

NARRATIVE: CASE EVENT DATE: 20191024
